FAERS Safety Report 8150440 (Version 2)
Quarter: 2013Q1

REPORT INFORMATION
  Report Type: Spontaneous
  Country: US (occurrence: US)
  Receive Date: 20110922
  Receipt Date: 20130219
  Transmission Date: 20140127
  Serious: Yes (Other)
  Sender: FDA-Public Use
  Company Number: US-ASTRAZENECA-2011SE09901

PATIENT
  Age: 21 Year
  Sex: Male

DRUGS (2)
  1. SEROQUEL XR [Suspect]
     Route: 048
  2. SEROQUEL XR [Suspect]
     Route: 048

REACTIONS (8)
  - Suicidal behaviour [Unknown]
  - Anxiety [Unknown]
  - Depression [Unknown]
  - Feeling abnormal [Unknown]
  - Hallucination [Unknown]
  - Malaise [Unknown]
  - Dizziness [Unknown]
  - Drug dose omission [Unknown]
